FAERS Safety Report 26090959 (Version 2)
Quarter: 2025Q4

REPORT INFORMATION
  Report Type: Report from Study
  Country: US (occurrence: US)
  Receive Date: 20251126
  Receipt Date: 20251201
  Transmission Date: 20260117
  Serious: Yes (Hospitalization, Other)
  Sender: ABBVIE
  Company Number: US-ABBVIE-6548080

PATIENT
  Age: 40 Year
  Sex: Female
  Weight: 164.65 kg

DRUGS (2)
  1. HUMIRA [Suspect]
     Active Substance: ADALIMUMAB
     Indication: Product used for unknown indication
     Route: 058
  2. RINVOQ [Suspect]
     Active Substance: UPADACITINIB
     Indication: Rheumatoid arthritis
     Dosage: FORM STRENGTH: 15 MILLIGRAM?LAST ADMIN DATE: OCT 2025
     Route: 048
     Dates: start: 20251013

REACTIONS (2)
  - Overweight [Recovering/Resolving]
  - Adverse drug reaction [Unknown]

NARRATIVE: CASE EVENT DATE: 20251001
